FAERS Safety Report 11727204 (Version 1)
Quarter: 2015Q4

REPORT INFORMATION
  Report Type: Spontaneous
  Country: US (occurrence: US)
  Receive Date: 20151112
  Receipt Date: 20151112
  Transmission Date: 20160304
  Serious: Yes (Hospitalization)
  Sender: FDA-Public Use
  Company Number: US-BEH-2015055538

PATIENT
  Age: 50 Year
  Sex: Female
  Weight: 90 kg

DRUGS (12)
  1. BERINERT [Suspect]
     Active Substance: HUMAN C1-ESTERASE INHIBITOR
     Indication: HEREDITARY ANGIOEDEMA
     Dosage: AS DIRECTED (500 UNIT VIAL)
     Route: 042
     Dates: start: 20150703
  2. STERILE WATER FOR INJECTION [Concomitant]
     Active Substance: WATER
  3. ALBUTEROL SULFATE. [Concomitant]
     Active Substance: ALBUTEROL SULFATE
  4. BENADRYL [Concomitant]
     Active Substance: DIPHENHYDRAMINE HYDROCHLORIDE
  5. TYLENOL [Concomitant]
     Active Substance: ACETAMINOPHEN
  6. DONEPEZIL. [Concomitant]
     Active Substance: DONEPEZIL
  7. SODIUM CHLORIDE. [Concomitant]
     Active Substance: SODIUM CHLORIDE
  8. QUETIAPINE FUMARATE. [Concomitant]
     Active Substance: QUETIAPINE FUMARATE
  9. HEPARIN [Concomitant]
     Active Substance: HEPARIN SODIUM
     Indication: FLUSHING
  10. EPIPEN [Concomitant]
     Active Substance: EPINEPHRINE
  11. OLANZAPINE. [Concomitant]
     Active Substance: OLANZAPINE
  12. LORAZEPAM. [Concomitant]
     Active Substance: LORAZEPAM

REACTIONS (1)
  - Tracheitis [Recovered/Resolved]

NARRATIVE: CASE EVENT DATE: 20151031
